FAERS Safety Report 4968712-9 (Version None)
Quarter: 2006Q2

REPORT INFORMATION
  Report Type: 
  Country: None (occurrence: None)
  Receive Date: 20060405
  Receipt Date: 20060323
  Transmission Date: 20061013
  Serious: Yes (Hospitalization)
  Sender: FDA-Public Use
  Company Number: 2006030838

PATIENT
  Age: 61 Year
  Sex: Female
  Weight: 58 kg

DRUGS (2)
  1. LYRICA [Suspect]
     Indication: TRIGEMINAL NEURALGIA
     Dosage: ORAL
     Route: 048
     Dates: start: 20050713, end: 20050801
  2. TRILEPTAL [Concomitant]

REACTIONS (16)
  - AGITATION [None]
  - ALANINE AMINOTRANSFERASE INCREASED [None]
  - CONFUSIONAL STATE [None]
  - EXTENSOR PLANTAR RESPONSE [None]
  - GAIT DISTURBANCE [None]
  - GAMMA-GLUTAMYLTRANSFERASE INCREASED [None]
  - GRIMACING [None]
  - HEMIPARESIS [None]
  - HYPOKALAEMIA [None]
  - HYPONATRAEMIA [None]
  - MUTISM [None]
  - PARAPARESIS [None]
  - POSITIVE ROMBERGISM [None]
  - RESTLESSNESS [None]
  - SCREAMING [None]
  - THERAPEUTIC AGENT TOXICITY [None]
